FAERS Safety Report 9417531 (Version 2)
Quarter: 2013Q4

REPORT INFORMATION
  Report Type: Spontaneous
  Country: US (occurrence: US)
  Receive Date: 20130724
  Receipt Date: 20131022
  Transmission Date: 20140711
  Serious: No
  Sender: FDA-Public Use
  Company Number: US-BRISTOL-MYERS SQUIBB COMPANY-19042597

PATIENT
  Sex: Male
  Weight: 87 kg

DRUGS (1)
  1. APIXABAN [Suspect]
     Dosage: REDUCED TO 2.5MG .THERAPY TO 03JUN13.
     Route: 048
     Dates: start: 20130321

REACTIONS (1)
  - Rectal haemorrhage [Unknown]
